FAERS Safety Report 4912303-2 (Version None)
Quarter: 2006Q1

REPORT INFORMATION
  Report Type: 
  Country: None (occurrence: None)
  Receive Date: 20060215
  Receipt Date: 20060206
  Transmission Date: 20060701
  Serious: Yes (Other)
  Sender: FDA-Public Use
  Company Number: FR-JNJFOC-20060201554

PATIENT
  Sex: Female

DRUGS (1)
  1. REMICADE [Suspect]
     Indication: CROHN'S DISEASE
     Dosage: 7 INFUSIONS
     Route: 042

REACTIONS (1)
  - CUTANEOUS LUPUS ERYTHEMATOSUS [None]
